FAERS Safety Report 20443638 (Version 9)
Quarter: 2023Q2

REPORT INFORMATION
  Report Type: Report from Study
  Country: GB (occurrence: GB)
  Receive Date: 20220208
  Receipt Date: 20230522
  Transmission Date: 20230722
  Serious: Yes (Other)
  Sender: FDA-Public Use
  Company Number: GB-NOVARTISPH-NVSC2022GB011709

PATIENT
  Age: 37 Year
  Sex: Female

DRUGS (1)
  1. KISQALI [Suspect]
     Active Substance: RIBOCICLIB
     Indication: Breast cancer
     Dosage: UNK, QD
     Route: 048
     Dates: start: 20211224

REACTIONS (17)
  - Haematochezia [Recovered/Resolved]
  - Neutropenia [Unknown]
  - Insomnia [Unknown]
  - Skin lesion [Unknown]
  - Tooth infection [Recovering/Resolving]
  - COVID-19 [Recovered/Resolved]
  - Fatigue [Unknown]
  - Contusion [Unknown]
  - Myalgia [Unknown]
  - Mucosal inflammation [Unknown]
  - Tongue ulceration [Unknown]
  - Anal fissure [Recovered/Resolved]
  - Mouth ulceration [Unknown]
  - Constipation [Unknown]
  - Dizziness [Unknown]
  - White blood cell count decreased [Unknown]
  - Urinary tract infection [Unknown]

NARRATIVE: CASE EVENT DATE: 20220204
